FAERS Safety Report 7406317-0 (Version None)
Quarter: 2011Q2

REPORT INFORMATION
  Report Type: 
  Country: None (occurrence: None)
  Receive Date: 20110411
  Receipt Date: 20110329
  Transmission Date: 20111010
  Serious: Yes (Disabling)
  Sender: FDA-Public Use
  Company Number: US-MERCK-1103USA03949

PATIENT
  Sex: Female

DRUGS (2)
  1. FOSAMAX [Suspect]
     Route: 048
     Dates: start: 19970101, end: 20100101
  2. FOSAMAX [Suspect]
     Route: 048
     Dates: start: 20020101, end: 20060101

REACTIONS (1)
  - FEMUR FRACTURE [None]
